FAERS Safety Report 9705664 (Version 1)
Quarter: 2013Q4

REPORT INFORMATION
  Report Type: Spontaneous
  Country: US (occurrence: US)
  Receive Date: 20131122
  Receipt Date: 20131122
  Transmission Date: 20140711
  Serious: No
  Sender: FDA-Public Use
  Company Number: US-GILEAD-2008-0017550

PATIENT
  Sex: Female
  Weight: 113.4 kg

DRUGS (14)
  1. LETAIRIS [Suspect]
     Indication: PULMONARY ARTERIAL HYPERTENSION
     Route: 048
     Dates: start: 20080707
  2. OXYGEN [Concomitant]
     Dosage: AS DIRECTED
     Route: 055
  3. REQUIP [Concomitant]
     Route: 048
  4. MUCOMYST [Concomitant]
     Dosage: AS DIRECTED
     Route: 055
  5. LASIX [Concomitant]
     Route: 048
  6. PREDNISONE [Concomitant]
     Route: 048
  7. IPRATROPIUM BR [Concomitant]
     Dosage: AS DIRECTED
     Route: 055
  8. ADVAIR [Concomitant]
     Route: 055
  9. PRILOSEC [Concomitant]
     Dosage: AS DIRECTED
     Route: 048
  10. ASPIRIN [Concomitant]
     Route: 048
  11. DILTIA XT [Concomitant]
     Route: 048
  12. SPIRIVA [Concomitant]
     Route: 055
  13. VITAMIN D [Concomitant]
     Dosage: AS DIRECTED
     Route: 048
  14. CALCIUM + D [Concomitant]

REACTIONS (3)
  - Fluid overload [None]
  - Cardiac disorder [None]
  - Dyspnoea [None]
